FAERS Safety Report 9215152 (Version 1)
Quarter: 2013Q2

REPORT INFORMATION
  Report Type: Spontaneous
  Country: JP (occurrence: JP)
  Receive Date: 20130405
  Receipt Date: 20130405
  Transmission Date: 20140414
  Serious: Yes (Other)
  Sender: FDA-Public Use
  Company Number: JP-BRISTOL-MYERS SQUIBB COMPANY-18753442

PATIENT
  Age: 6 Decade
  Sex: 0

DRUGS (3)
  1. ERBITUX SOLN FOR INF 5MG/ML [Suspect]
     Indication: LIP AND/OR ORAL CAVITY CANCER
     Route: 041
  2. CISPLATIN FOR INJ [Suspect]
     Indication: LIP AND/OR ORAL CAVITY CANCER
     Route: 041
  3. 5-FLUOROURACIL [Suspect]
     Indication: LIP AND/OR ORAL CAVITY CANCER
     Route: 041

REACTIONS (1)
  - Platelet count decreased [Unknown]
